FAERS Safety Report 10042125 (Version 1)
Quarter: 2014Q1

REPORT INFORMATION
  Report Type: Spontaneous
  Country: ES (occurrence: ES)
  Receive Date: 20140327
  Receipt Date: 20140327
  Transmission Date: 20141002
  Serious: Yes (Other)
  Sender: FDA-Public Use
  Company Number: ES-BAXTER-2014BAX014027

PATIENT
  Age: 10 Year
  Sex: Female

DRUGS (9)
  1. GENOXAL 1 G INYECTABLE [Suspect]
     Indication: ALLERGIC GRANULOMATOUS ANGIITIS
     Dosage: 500-750 MG/M2
     Route: 065
  2. GENOXAL 1 G INYECTABLE [Suspect]
     Dosage: 500-750 MG/M2
     Route: 065
  3. KIOVIG 100 MG/ML SOLUCI?N PARA PERFUSI?N 20G/200ML [Suspect]
     Indication: ALLERGIC GRANULOMATOUS ANGIITIS
     Route: 042
  4. KIOVIG 100 MG/ML SOLUCI?N PARA PERFUSI?N 20G/200ML [Suspect]
     Indication: OFF LABEL USE
  5. METHYLPREDNISOLONE [Suspect]
     Indication: ALLERGIC GRANULOMATOUS ANGIITIS
     Route: 040
  6. METHYLPREDNISOLONE [Suspect]
     Route: 040
  7. PREDNISOLONE [Suspect]
     Indication: ALLERGIC GRANULOMATOUS ANGIITIS
     Route: 065
  8. RITUXIMAB [Suspect]
     Indication: ALLERGIC GRANULOMATOUS ANGIITIS
     Route: 065
  9. MYCOPHENOLATE MOFETIL [Suspect]
     Indication: ALLERGIC GRANULOMATOUS ANGIITIS
     Route: 065

REACTIONS (3)
  - Allergic granulomatous angiitis [Recovered/Resolved]
  - Drug ineffective [Recovered/Resolved]
  - Disease recurrence [Recovered/Resolved]
